FAERS Safety Report 9662324 (Version 2)
Quarter: 2013Q4

REPORT INFORMATION
  Report Type: Spontaneous
  Country: US (occurrence: US)
  Receive Date: 20131031
  Receipt Date: 20131031
  Transmission Date: 20140711
  Serious: No
  Sender: FDA-Public Use
  Company Number: US-PURDUE-USA-2011-0069260

PATIENT
  Sex: Male

DRUGS (3)
  1. OXYCONTIN (NDA 22-272) [Suspect]
     Indication: BACK PAIN
     Dosage: 20 MG, Q8H
     Route: 048
     Dates: start: 201012, end: 201104
  2. OXYCONTIN (NDA 22-272) [Suspect]
     Dosage: 40 MG, ONE TO THREE TIMES DAY
     Route: 048
  3. CLONAZEPAM [Concomitant]
     Indication: PRODUCT USED FOR UNKNOWN INDICATION

REACTIONS (4)
  - Pain [Unknown]
  - Drug effect decreased [Not Recovered/Not Resolved]
  - Constipation [Unknown]
  - Drug ineffective [Unknown]
